FAERS Safety Report 7921545 (Version 2)
Quarter: 2015Q1

REPORT INFORMATION
  Report Type: Report from Study
  Country: US (occurrence: US)
  Receive Date: 20110429
  Receipt Date: 20150219
  Transmission Date: 20150721
  Serious: Yes (Other)
  Sender: FDA-Public Use
  Company Number: US-ASTRAZENECA-2010SE46149

PATIENT
  Age: 22828 Day
  Sex: Female
  Weight: 99.8 kg

DRUGS (6)
  1. PRILOSEC [Suspect]
     Active Substance: OMEPRAZOLE MAGNESIUM
     Indication: GASTROOESOPHAGEAL REFLUX DISEASE
     Route: 048
  2. PREDNISONE. [Concomitant]
     Active Substance: PREDNISONE
     Indication: WAGNER^S DISEASE
  3. CIPRO [Concomitant]
     Active Substance: CIPROFLOXACIN HYDROCHLORIDE
     Indication: SINUSITIS
  4. MERREM [Suspect]
     Active Substance: MEROPENEM
     Route: 042
  5. NEXIUM [Suspect]
     Active Substance: ESOMEPRAZOLE MAGNESIUM
     Route: 048
     Dates: start: 2012, end: 2014
  6. NEXIUM [Suspect]
     Active Substance: ESOMEPRAZOLE MAGNESIUM
     Route: 048
     Dates: start: 201412

REACTIONS (13)
  - Wrong patient received medication [Unknown]
  - Throat irritation [Unknown]
  - Drug ineffective [Unknown]
  - Dysphagia [Unknown]
  - Drug dose omission [Unknown]
  - Cough [Unknown]
  - Choking [Unknown]
  - Regurgitation [Unknown]
  - Adverse event [Unknown]
  - Therapeutic response unexpected [Unknown]
  - Intentional product misuse [Not Recovered/Not Resolved]
  - Gastrooesophageal reflux disease [Unknown]
  - Off label use [Unknown]

NARRATIVE: CASE EVENT DATE: 201412
